FAERS Safety Report 7124687-8 (Version None)
Quarter: 2010Q4

REPORT INFORMATION
  Report Type: 
  Country: None (occurrence: None)
  Receive Date: 20101122
  Receipt Date: 20101122
  Transmission Date: 20110411
  Serious: No
  Sender: FDA-Public Use
  Company Number: None

PATIENT
  Age: 62 Year
  Sex: Male

DRUGS (1)
  1. REMICADE [Suspect]
     Indication: RHEUMATOID ARTHRITIS
     Dosage: 400MG IV
     Route: 042

REACTIONS (3)
  - DRUG HYPERSENSITIVITY [None]
  - HYPOXIA [None]
  - NO THERAPEUTIC RESPONSE [None]
